FAERS Safety Report 8381780 (Version 2)
Quarter: 2012Q4

REPORT INFORMATION
  Report Type: 
  Country: US (occurrence: US)
  Receive Date: 20120201
  Receipt Date: 20121016
  Transmission Date: 20130627
  Serious: No
  Sender: FDA-Public Use
  Company Number: US-PFIZER INC-2012022944

PATIENT
  Age: 60 Year
  Sex: Female

DRUGS (4)
  1. LIPITOR [Suspect]
     Dosage: 40 mg, qhs
     Route: 048
  2. CELEBREX [Suspect]
     Dosage: 200 mg, qd-bid prn
  3. PREMARIN [Suspect]
     Dosage: UNK
  4. NEURONTIN [Suspect]
     Dosage: 400 mg, 4x/day
     Route: 048

REACTIONS (1)
  - Pain [Unknown]
